FAERS Safety Report 6297846-4 (Version None)
Quarter: 2009Q3

REPORT INFORMATION
  Report Type: 
  Country: None (occurrence: None)
  Receive Date: 20090805
  Receipt Date: 20090722
  Transmission Date: 20100115
  Serious: Yes (Death)
  Sender: FDA-Public Use
  Company Number: CN-GENENTECH-283885

PATIENT

DRUGS (1)
  1. MABTHERA [Suspect]
     Indication: B-CELL LYMPHOMA
     Dosage: 375 MG/M2, UNK
     Route: 042

REACTIONS (5)
  - ALOPECIA [None]
  - BONE MARROW FAILURE [None]
  - DISEASE PROGRESSION [None]
  - HEPATITIS [None]
  - LIVER INJURY [None]
